FAERS Safety Report 23437314 (Version 1)
Quarter: 2024Q1

REPORT INFORMATION
  Report Type: Other
  Country: None (occurrence: US)
  Receive Date: 20240124
  Receipt Date: 20240124
  Transmission Date: 20240410
  Serious: No
  Sender: FDA-Public Use
  Company Number: US-Nostrum Laboratories, Inc.-2151881

PATIENT
  Age: 54 Year
  Sex: Female

DRUGS (1)
  1. HYDROCODONE BITARTRATE AND ACETAMINOPHEN [Suspect]
     Active Substance: ACETAMINOPHEN\HYDROCODONE BITARTRATE
     Indication: Pain
     Route: 048

REACTIONS (2)
  - Dyspepsia [Unknown]
  - Flushing [Unknown]
